FAERS Safety Report 5131607-4 (Version None)
Quarter: 2006Q4

REPORT INFORMATION
  Report Type: 
  Country: None (occurrence: None)
  Receive Date: 20061020
  Receipt Date: 20060504
  Transmission Date: 20070319
  Serious: Yes (Other)
  Sender: FDA-Public Use
  Company Number: PHEH2006US05861

PATIENT
  Age: 22 Year
  Sex: Male
  Weight: 67.12 kg

DRUGS (2)
  1. EXJADE [Suspect]
     Indication: BLOOD IRON INCREASED
     Dosage: 1500 MG, QD
     Route: 048
     Dates: start: 20060202, end: 20060401
  2. EXJADE [Suspect]
     Dosage: UNK, UNK
     Dates: start: 20060502, end: 20060601

REACTIONS (10)
  - ABDOMINAL DISCOMFORT [None]
  - AMNESIA [None]
  - ANOREXIA [None]
  - CONFUSIONAL STATE [None]
  - DIARRHOEA [None]
  - FATIGUE [None]
  - INAPPROPRIATE AFFECT [None]
  - INCOHERENT [None]
  - PERSONALITY CHANGE [None]
  - RASH [None]
